FAERS Safety Report 7907883-9 (Version None)
Quarter: 2011Q4

REPORT INFORMATION
  Report Type: 
  Country: None (occurrence: None)
  Receive Date: 20111110
  Receipt Date: 20111104
  Transmission Date: 20120403
  Serious: Yes (Hospitalization)
  Sender: FDA-Public Use
  Company Number: US-US-EMD SERONO, INC.-7094217

PATIENT
  Age: 35 Year
  Sex: Male
  Weight: 73 kg

DRUGS (4)
  1. ATENOLOL [Concomitant]
  2. EGRIFTA [Suspect]
     Indication: LIPODYSTROPHY ACQUIRED
     Dates: start: 20111017, end: 20111027
  3. VITAMIN TAB [Concomitant]
  4. ACYCLOVIR [Concomitant]

REACTIONS (2)
  - THROMBOSIS [None]
  - PULMONARY THROMBOSIS [None]
